FAERS Safety Report 25768312 (Version 1)
Quarter: 2025Q3

REPORT INFORMATION
  Report Type: Spontaneous
  Country: US (occurrence: US)
  Receive Date: 20250905
  Receipt Date: 20250905
  Transmission Date: 20251020
  Serious: No
  Sender: DOMPE FARMACEUTICI
  Company Number: US-FARMAPROD-202506-2020

PATIENT
  Sex: Female
  Weight: 89.86 kg

DRUGS (7)
  1. OXERVATE [Suspect]
     Active Substance: CENEGERMIN-BKBJ
     Indication: Neurotrophic keratopathy
     Route: 047
     Dates: start: 20250603
  2. GABAPENTIN [Concomitant]
     Active Substance: GABAPENTIN
  3. ESTRADIOL [Concomitant]
     Active Substance: ESTRADIOL
  4. RESTASIS [Concomitant]
     Active Substance: CYCLOSPORINE
  5. LATANOPROST [Concomitant]
     Active Substance: LATANOPROST
  6. BETAMETHASONE\CLOTRIMAZOLE [Concomitant]
     Active Substance: BETAMETHASONE\CLOTRIMAZOLE
  7. TIMOLOL MALEATE [Concomitant]
     Active Substance: TIMOLOL MALEATE

REACTIONS (6)
  - Asthenopia [Unknown]
  - Photophobia [Unknown]
  - Eye pain [Unknown]
  - Ocular hyperaemia [Unknown]
  - Eye irritation [Unknown]
  - Visual impairment [Unknown]
